FAERS Safety Report 11485294 (Version 1)
Quarter: 2015Q3

REPORT INFORMATION
  Report Type: Spontaneous
  Country: US (occurrence: US)
  Receive Date: 20150903
  Receipt Date: 20150903
  Transmission Date: 20151125
  Serious: No
  Sender: FDA-Public Use
  Company Number: US-ELI_LILLY_AND_COMPANY-US201209004701

PATIENT
  Age: 45 Year
  Sex: Female

DRUGS (5)
  1. CYMBALTA [Suspect]
     Active Substance: DULOXETINE HYDROCHLORIDE
     Dosage: 60 MG, QD
     Dates: end: 20120908
  2. TRAMADOL. [Concomitant]
     Active Substance: TRAMADOL
  3. CYMBALTA [Suspect]
     Active Substance: DULOXETINE HYDROCHLORIDE
     Indication: DEPRESSION
     Dosage: 30 MG, QD
     Dates: start: 200802
  4. CLONAZEPAM. [Concomitant]
     Active Substance: CLONAZEPAM
  5. ESTRADIOL. [Concomitant]
     Active Substance: ESTRADIOL

REACTIONS (13)
  - Headache [Unknown]
  - Nausea [Unknown]
  - Insomnia [Unknown]
  - Cerebral disorder [Unknown]
  - Hyperhidrosis [Unknown]
  - Drug withdrawal syndrome [Unknown]
  - Intervertebral disc protrusion [Unknown]
  - Dizziness [Unknown]
  - Irritability [Unknown]
  - Feeling of body temperature change [Unknown]
  - Peripheral coldness [Unknown]
  - Memory impairment [Unknown]
  - Hysterectomy [Unknown]

NARRATIVE: CASE EVENT DATE: 2011
